FAERS Safety Report 7502376-5 (Version None)
Quarter: 2011Q2

REPORT INFORMATION
  Report Type: 
  Country: None (occurrence: None)
  Receive Date: 20110525
  Receipt Date: 20110517
  Transmission Date: 20111010
  Serious: Yes (Hospitalization, Other)
  Sender: FDA-Public Use
  Company Number: JP-ASTELLAS-2011JP001693

PATIENT
  Sex: Female
  Weight: 47 kg

DRUGS (21)
  1. LIPOZART [Concomitant]
     Indication: HYPERLIPIDAEMIA
     Dosage: 10 MG, UID/QD
     Route: 048
     Dates: start: 20090901
  2. METHOTREXATE [Suspect]
     Dosage: 2.5 MG, UID/QD
     Route: 048
     Dates: start: 20090901, end: 20110208
  3. METHOTREXATE [Suspect]
     Dosage: 5 MG, UID/QD
     Route: 048
     Dates: start: 20110209, end: 20110302
  4. MICARDIS [Suspect]
     Dosage: 40 MG, QOD
     Route: 048
     Dates: start: 20101214, end: 20110208
  5. MICARDIS [Suspect]
     Dosage: 80 MG, UID/QD
     Route: 048
     Dates: start: 20110209
  6. PAXIL [Concomitant]
     Indication: DEPRESSION
     Dosage: 20 MG, UID/QD
     Route: 048
     Dates: start: 20090901
  7. SAFILDINE EN [Concomitant]
     Indication: RHEUMATOID ARTHRITIS
     Dosage: 1000 MG, UID/QD
     Route: 048
     Dates: start: 20090901
  8. BENET [Concomitant]
     Indication: OSTEOPOROSIS PROPHYLAXIS
     Dosage: 17.5 MG, WEEKLY
     Route: 048
     Dates: start: 20090901
  9. ISONIAZID [Concomitant]
     Indication: ANTIBIOTIC PROPHYLAXIS
     Dosage: 200 MG, UID/QD
     Route: 048
     Dates: start: 20090901
  10. ETICALM [Concomitant]
     Indication: DEPRESSION
     Dosage: 1 MG, UID/QD
     Route: 048
     Dates: start: 20090901
  11. LEBENIN [Concomitant]
     Indication: DISBACTERIOSIS
     Dosage: 1 G, TID
     Route: 048
     Dates: start: 20090901
  12. PROGRAF [Suspect]
     Dosage: 3 MG, UNKNOWN/D
     Route: 048
  13. METHOTREXATE [Suspect]
     Indication: RHEUMATOID ARTHRITIS
     Dosage: 15 MG, UNKNOWN/D
     Route: 048
  14. MICARDIS [Suspect]
     Indication: HYPERTENSION
     Dosage: 40 MG, UID/QD
     Route: 048
     Dates: start: 20101212, end: 20101213
  15. CLARITHROMYCIN [Concomitant]
     Indication: BRONCHITIS CHRONIC
     Dosage: 400 MG, UID/QD
     Route: 048
     Dates: start: 20110209
  16. PROGRAF [Suspect]
     Indication: RHEUMATOID ARTHRITIS
     Dosage: 1 MG, UID/QD
     Route: 048
     Dates: start: 20090901
  17. TELMISARTAN [Suspect]
     Dosage: 1 DF, QOD
     Route: 048
     Dates: start: 20101130, end: 20110126
  18. MAGMITT [Concomitant]
     Indication: GASTRITIS PROPHYLAXIS
     Dosage: 500 MG, UID/QD
     Route: 048
     Dates: start: 20090901
  19. TELMISARTAN [Suspect]
     Indication: HYPERTENSION
     Dosage: 1 DF, UID/QD
     Route: 048
     Dates: start: 20101105, end: 20101129
  20. MEDROL [Suspect]
     Indication: RHEUMATOID ARTHRITIS
     Dosage: 8 MG, UID/QD
     Route: 048
     Dates: start: 20090901
  21. CALFINA [Concomitant]
     Indication: OSTEOPOROSIS PROPHYLAXIS
     Dosage: 0.5 UG, UID/QD
     Route: 048
     Dates: start: 20090901

REACTIONS (8)
  - PNEUMONIA ASPIRATION [None]
  - SUBDURAL HAEMATOMA [None]
  - BLOOD GLUCOSE INCREASED [None]
  - POLYURIA [None]
  - INTERSTITIAL LUNG DISEASE [None]
  - FALL [None]
  - WEIGHT DECREASED [None]
  - PLATELET COUNT DECREASED [None]
